FAERS Safety Report 6069801-0 (Version None)
Quarter: 2009Q1

REPORT INFORMATION
  Report Type: 
  Country: None (occurrence: None)
  Receive Date: 20090209
  Receipt Date: 20090204
  Transmission Date: 20090719
  Serious: Yes (Other)
  Sender: FDA-Public Use
  Company Number: US-AMGEN-US332016

PATIENT
  Sex: Female

DRUGS (2)
  1. NEULASTA [Suspect]
     Indication: AGRANULOCYTOSIS
     Route: 065
  2. NEUPOGEN [Suspect]
     Indication: AGRANULOCYTOSIS
     Route: 065

REACTIONS (1)
  - NO THERAPEUTIC RESPONSE [None]
